FAERS Safety Report 4626711-0 (Version None)
Quarter: 2005Q2

REPORT INFORMATION
  Report Type: 
  Country: None (occurrence: None)
  Receive Date: 20050405
  Receipt Date: 20050401
  Transmission Date: 20051028
  Serious: Yes (Congenital Anomaly)
  Sender: FDA-Public Use
  Company Number: FR-BOEHRINGER INGELHEIM PHARMACEUTICALS, INC.-2005-BP-05406RO

PATIENT

DRUGS (2)
  1. METHOTREXATE [Suspect]
     Dosage: 7.5 MG/WEEK (MATERNAL EXPOSURE)
     Route: 015
  2. SULFASALAZINE [Suspect]
     Dosage: 3 G/D (MATERNAL EXPOSURE)
     Route: 015

REACTIONS (3)
  - DRUG EXPOSURE DURING PREGNANCY [None]
  - HAEMANGIOMA [None]
  - TALIPES [None]
